FAERS Safety Report 9240028 (Version 1)
Quarter: 2013Q2

REPORT INFORMATION
  Report Type: Spontaneous
  Country: US (occurrence: None)
  Receive Date: 20130418
  Receipt Date: 20130418
  Transmission Date: 20140414
  Serious: Yes (Death, Hospitalization)
  Sender: FDA-Public Use
  Company Number: None

PATIENT
  Age: 74 Year
  Sex: Male
  Weight: 88.5 kg

DRUGS (2)
  1. VELCADE [Suspect]
     Indication: DIFFUSE LARGE B-CELL LYMPHOMA
     Dosage: 1.6 MG/M2 DAYS 1, 8, 15, 22; IV
     Dates: start: 20120910, end: 20120925
  2. TEMSIROLIMUS [Suspect]
     Indication: DIFFUSE LARGE B-CELL LYMPHOMA
     Dosage: 25 MG; DAYS 1, 8, 15, 22; IV
     Route: 042
     Dates: start: 20120910, end: 20120925

REACTIONS (3)
  - No therapeutic response [None]
  - Lymphoma [None]
  - Disease progression [None]
